FAERS Safety Report 4288610-6 (Version None)
Quarter: 2004Q1

REPORT INFORMATION
  Report Type: 
  Country: None (occurrence: None)
  Receive Date: 20040209
  Receipt Date: 20040107
  Transmission Date: 20041129
  Serious: Yes (Other)
  Sender: FDA-Public Use
  Company Number: NL-GLAXOSMITHKLINE-B0319175A

PATIENT
  Age: 51 Year
  Sex: Female

DRUGS (2)
  1. BUPROPION HYDROCHLORIDE [Suspect]
     Indication: EX-SMOKER
     Dates: start: 20031201
  2. NO CONCURRENT MEDICATION [Concomitant]

REACTIONS (1)
  - VAGINAL HAEMORRHAGE [None]
